FAERS Safety Report 6027600-X (Version None)
Quarter: 2009Q1

REPORT INFORMATION
  Report Type: 
  Country: None (occurrence: None)
  Receive Date: 20090105
  Receipt Date: 20081124
  Transmission Date: 20090719
  Serious: No
  Sender: FDA-Public Use
  Company Number: US-BAYER-200814582BCC

PATIENT
  Age: 50 Year
  Sex: Female
  Weight: 52 kg

DRUGS (4)
  1. ALEVE [Suspect]
     Indication: MYALGIA
     Dosage: AS USED: 1/2 DF  UNIT DOSE: 1 DF
     Dates: start: 19980101, end: 20080101
  2. ALEVE (CAPLET) [Suspect]
     Indication: MYALGIA
     Dosage: AS USED: 1/2 DF  UNIT DOSE: 1 DF
     Dates: start: 19980101, end: 20080101
  3. ALEVE [Suspect]
     Indication: MYALGIA
     Dosage: AS USED: 1/2 DF  UNIT DOSE: 1 DF
  4. ULTRAM [Concomitant]

REACTIONS (1)
  - ABDOMINAL PAIN UPPER [None]
